FAERS Safety Report 10377052 (Version 4)
Quarter: 2015Q2

REPORT INFORMATION
  Report Type: Report from Study
  Country: US (occurrence: US)
  Receive Date: 20140812
  Receipt Date: 20150422
  Transmission Date: 20150821
  Serious: Yes (Hospitalization, Other)
  Sender: FDA-Public Use
  Company Number: US-AMGEN-USASP2014053229

PATIENT
  Age: 63 Year
  Sex: Female
  Weight: 65.76 kg

DRUGS (4)
  1. PROLIA [Suspect]
     Active Substance: DENOSUMAB
     Indication: OSTEOPOROSIS POSTMENOPAUSAL
     Dosage: 60 MG/ML, Q6MO
     Route: 042
     Dates: start: 20140626
  2. VITAMIN D                          /00107901/ [Concomitant]
     Active Substance: ERGOCALCIFEROL
  3. LASIX [Concomitant]
     Active Substance: FUROSEMIDE
  4. NEXIUM [Concomitant]
     Active Substance: ESOMEPRAZOLE MAGNESIUM

REACTIONS (11)
  - Electrocardiogram ST segment abnormal [Unknown]
  - Blood creatinine abnormal [Unknown]
  - Fall [Unknown]
  - Syncope [Unknown]
  - Blood electrolytes decreased [Unknown]
  - Blood potassium decreased [Recovered/Resolved]
  - Hypocalcaemia [Unknown]
  - Blood magnesium decreased [Unknown]
  - Muscle spasms [Unknown]
  - Blood albumin abnormal [Unknown]
  - Injury [Unknown]

NARRATIVE: CASE EVENT DATE: 20140627
